FAERS Safety Report 13835449 (Version 1)
Quarter: 2017Q3

REPORT INFORMATION
  Report Type: Spontaneous
  Country: IE (occurrence: IE)
  Receive Date: 20170804
  Receipt Date: 20170804
  Transmission Date: 20171127
  Serious: Yes (Other)
  Sender: FDA-Public Use
  Company Number: IE-009507513-1703IRL005104

PATIENT
  Age: 40 Year
  Sex: Female

DRUGS (6)
  1. IMPLANON [Suspect]
     Active Substance: ETONOGESTREL
     Dosage: 1 IMPLANT, UNK
     Route: 059
  2. IMPLANON [Suspect]
     Active Substance: ETONOGESTREL
     Dosage: 1 IMPLANT, UNK
     Route: 059
     Dates: end: 20170207
  3. IMPLANON [Suspect]
     Active Substance: ETONOGESTREL
     Dosage: 1 IMPLANT, UNK, IN LEFT ARM
     Route: 059
     Dates: start: 20170207, end: 20170307
  4. IMPLANON [Suspect]
     Active Substance: ETONOGESTREL
     Dosage: 1 IMPLANT, UNK
     Route: 059
  5. IMPLANON [Suspect]
     Active Substance: ETONOGESTREL
     Dosage: 1 IMPLANT, UNK
     Route: 059
  6. IMPLANON [Suspect]
     Active Substance: ETONOGESTREL
     Dosage: 1 IMPLANT, UNK
     Route: 059
     Dates: start: 20170425

REACTIONS (8)
  - Device expulsion [Recovered/Resolved]
  - Implant site inflammation [Recovered/Resolved]
  - Skin fissures [Recovered/Resolved]
  - Difficulty removing drug implant [Recovered/Resolved]
  - Implant site cellulitis [Recovered/Resolved]
  - Complication associated with device [Recovered/Resolved]
  - Adenocarcinoma [Unknown]
  - Device kink [Recovered/Resolved]

NARRATIVE: CASE EVENT DATE: 201409
